FAERS Safety Report 9050662 (Version 3)
Quarter: 2013Q1

REPORT INFORMATION
  Report Type: Spontaneous
  Country: DK (occurrence: JP)
  Receive Date: 20130205
  Receipt Date: 20130228
  Transmission Date: 20140127
  Serious: Yes (Hospitalization, Other)
  Sender: FDA-Public Use
  Company Number: JP-FRI-1000042409

PATIENT
  Age: 55 None
  Sex: Female
  Weight: 50 kg

DRUGS (4)
  1. LEXAPRO [Suspect]
     Indication: DEPRESSION
     Dosage: 10 MG
     Route: 048
     Dates: start: 20121030, end: 20121212
  2. LITHIUM CARBONATE [Suspect]
     Indication: DEPRESSION
     Dosage: 800 MG
     Route: 048
     Dates: start: 20121030, end: 20121212
  3. AMOXAN [Concomitant]
     Indication: DEPRESSION
     Dosage: 100 MG
     Route: 048
     Dates: start: 2011
  4. CRESTOR [Concomitant]
     Indication: HYPERCHOLESTEROLAEMIA
     Dosage: 2.5 MG
     Route: 048
     Dates: start: 20110926

REACTIONS (1)
  - Drug-induced liver injury [Recovering/Resolving]
